FAERS Safety Report 4984884-4 (Version None)
Quarter: 2006Q1

REPORT INFORMATION
  Report Type: 
  Country: None (occurrence: None)
  Receive Date: 20060306
  Receipt Date: 20050307
  Transmission Date: 20060701
  Serious: Yes (Hospitalization)
  Sender: FDA-Public Use
  Company Number: MK200503-0086-1

PATIENT
  Sex: Male

DRUGS (2)
  1. ANAFRANIL CAP [Suspect]
     Indication: ANXIETY
     Dosage: 75 MG, Q HS
     Dates: end: 20050224
  2. KLONOPIN [Suspect]
     Indication: ANXIETY
     Dates: end: 20050224

REACTIONS (5)
  - DYSKINESIA [None]
  - MUSCLE TWITCHING [None]
  - MYOCARDIAL INFARCTION [None]
  - MYOCLONUS [None]
  - SPEECH DISORDER [None]
